FAERS Safety Report 9645766 (Version 3)
Quarter: 2014Q1

REPORT INFORMATION
  Report Type: Report from Study
  Country: CA (occurrence: CA)
  Receive Date: 20131025
  Receipt Date: 20140103
  Transmission Date: 20141002
  Serious: Yes (Other)
  Sender: FDA-Public Use
  Company Number: CA-JNJFOC-20131012460

PATIENT
  Sex: Female

DRUGS (1)
  1. STELARA [Suspect]
     Indication: PSORIASIS
     Dosage: PARTNER^S DOSING
     Route: 065
     Dates: start: 201012

REACTIONS (2)
  - Exposure via father [Recovered/Resolved]
  - Abortion spontaneous [Recovered/Resolved]
